FAERS Safety Report 11264756 (Version 2)
Quarter: 2015Q3

REPORT INFORMATION
  Report Type: Spontaneous
  Country: US (occurrence: US)
  Receive Date: 20150713
  Receipt Date: 20150721
  Transmission Date: 20151125
  Serious: Yes (Other)
  Sender: FDA-Public Use
  Company Number: US-SA-2015SA101499

PATIENT
  Age: 66 Year
  Sex: Male

DRUGS (2)
  1. BCG FOR IMMUNOTHERAPY [Suspect]
     Active Substance: BACILLUS CALMETTE-GUERIN ANTIGEN, UNSPECIFIED SUBSTRAIN
     Indication: BLADDER CANCER
     Route: 043
  2. BCG FOR IMMUNOTHERAPY [Suspect]
     Active Substance: BACILLUS CALMETTE-GUERIN ANTIGEN, UNSPECIFIED SUBSTRAIN
     Indication: BLADDER CANCER
     Dosage: SEMI ANNUAL MAINTENANCE THERAPY
     Route: 043

REACTIONS (7)
  - Joint stiffness [Recovered/Resolved]
  - Joint effusion [Recovered/Resolved]
  - Medical device site joint discomfort [Recovered/Resolved]
  - Disseminated Bacillus Calmette-Guerin infection [Recovered/Resolved]
  - Medical device site joint infection [Recovered/Resolved]
  - Medical device site joint movement impairment [Recovered/Resolved]
  - Bladder cancer recurrent [Unknown]
